FAERS Safety Report 20685079 (Version 1)
Quarter: 2022Q2

REPORT INFORMATION
  Report Type: Spontaneous
  Country: GB (occurrence: GB)
  Receive Date: 20220407
  Receipt Date: 20220407
  Transmission Date: 20220721
  Serious: Yes (Other)
  Sender: FDA-Public Use
  Company Number: GB-MHRA-MED-202203021358096100-YGGVZ

PATIENT
  Age: 46 Year
  Sex: Male
  Weight: 98 kg

DRUGS (1)
  1. FEBUXOSTAT [Suspect]
     Active Substance: FEBUXOSTAT
     Indication: Gout
     Dates: start: 2013

REACTIONS (1)
  - Hepatic cirrhosis [Not Recovered/Not Resolved]
